FAERS Safety Report 21070033 (Version 1)
Quarter: 2022Q3

REPORT INFORMATION
  Report Type: Spontaneous
  Country: US (occurrence: US)
  Receive Date: 20220712
  Receipt Date: 20220712
  Transmission Date: 20221027
  Serious: No
  Sender: FDA-Public Use
  Company Number: US-MYLANLABS-2022M1048142

PATIENT
  Sex: Male

DRUGS (4)
  1. LIDOCAINE PATCH [Suspect]
     Active Substance: LIDOCAINE
     Indication: Pain
     Dosage: UNK
     Route: 003
  2. LYRICA CR [Concomitant]
     Active Substance: PREGABALIN
     Dosage: 75 MILLIGRAM, BID (BEFORE MORNING AND NIGHT )
     Route: 065
  3. LYRICA CR [Concomitant]
     Active Substance: PREGABALIN
     Dosage: 150 MILLIGRAM, BID (MORNING AND NIGHT ALSO)
     Route: 065
  4. GABAPENTIN [Concomitant]
     Active Substance: GABAPENTIN
     Dosage: UNK
     Route: 065

REACTIONS (1)
  - Off label use [Unknown]
